FAERS Safety Report 11506231 (Version 2)
Quarter: 2015Q3

REPORT INFORMATION
  Report Type: Report from Study
  Country: US (occurrence: US)
  Receive Date: 20150915
  Receipt Date: 20150924
  Transmission Date: 20151125
  Serious: No
  Sender: FDA-Public Use
  Company Number: US-AMGEN-USASL2015092907

PATIENT
  Age: 60 Year
  Sex: Male

DRUGS (1)
  1. ENBREL [Suspect]
     Active Substance: ETANERCEPT
     Indication: RHEUMATOID ARTHRITIS
     Dosage: 50 MG, QWK
     Route: 065
     Dates: start: 20150819, end: 2015

REACTIONS (14)
  - Dyspnoea [Unknown]
  - Hypoaesthesia [Unknown]
  - Dizziness [Unknown]
  - Paraesthesia [Unknown]
  - Gait disturbance [Unknown]
  - Confusional state [Unknown]
  - Oropharyngeal pain [Unknown]
  - Muscular weakness [Unknown]
  - Injection site erythema [Recovered/Resolved]
  - Injection site reaction [Recovered/Resolved]
  - Arthralgia [Unknown]
  - Fatigue [Unknown]
  - Pallor [Unknown]
  - Pain [Unknown]

NARRATIVE: CASE EVENT DATE: 2015
